FAERS Safety Report 14453242 (Version 1)
Quarter: 2018Q1

REPORT INFORMATION
  Report Type: Spontaneous
  Country: US (occurrence: US)
  Receive Date: 20180127
  Receipt Date: 20180127
  Transmission Date: 20180509
  Serious: Yes (Other)
  Sender: FDA-Public Use
  Company Number: None

PATIENT
  Age: 64 Year
  Sex: Female

DRUGS (1)
  1. PROLIA [Suspect]
     Active Substance: DENOSUMAB
     Indication: PRURITUS
     Dosage: 1 SYRINGE ONCE EVERY 6 MONTHS SUBCUTANEOUS
     Route: 058

REACTIONS (1)
  - Gingival bleeding [None]
